FAERS Safety Report 11929657 (Version 2)
Quarter: 2016Q1

REPORT INFORMATION
  Report Type: Report from Study
  Country: BR (occurrence: BR)
  Receive Date: 20160120
  Receipt Date: 20160129
  Transmission Date: 20160526
  Serious: Yes (Death, Hospitalization)
  Sender: FDA-Public Use
  Company Number: BR-ASTRAZENECA-2016SE03952

PATIENT
  Age: 77 Year
  Sex: Female

DRUGS (1)
  1. BRILINTA [Suspect]
     Active Substance: TICAGRELOR
     Indication: DRESSLER^S SYNDROME
     Route: 048

REACTIONS (5)
  - Diabetes mellitus [Fatal]
  - Cardiac disorder [Not Recovered/Not Resolved]
  - Sepsis [Fatal]
  - Cardiac arrest [Fatal]
  - Myocardial infarction [Recovered/Resolved]

NARRATIVE: CASE EVENT DATE: 2015
